FAERS Safety Report 9163122 (Version 10)
Quarter: 2015Q2

REPORT INFORMATION
  Report Type: Report from Study
  Country: CL (occurrence: CL)
  Receive Date: 20130314
  Receipt Date: 20150512
  Transmission Date: 20150821
  Serious: Yes (Life-Threatening, Hospitalization)
  Sender: FDA-Public Use
  Company Number: CL-ROCHE-1195285

PATIENT
  Age: 76 Year
  Sex: Male
  Weight: 72 kg

DRUGS (35)
  1. POTASSIUM CHLORIDE. [Concomitant]
     Active Substance: POTASSIUM CHLORIDE
     Route: 065
     Dates: start: 20130223, end: 20130303
  2. METRONIDAZOLE. [Concomitant]
     Active Substance: METRONIDAZOLE
     Indication: NEUTROPENIA
     Route: 065
     Dates: start: 20130227, end: 20130312
  3. TRASTUZUMAB [Suspect]
     Active Substance: TRASTUZUMAB
     Indication: GASTRIC CANCER
     Dosage: LOADING DOSE:8MG/KG
     Route: 042
     Dates: start: 20121115
  4. METAMIZOLE SODIUM [Concomitant]
     Active Substance: METAMIZOLE SODIUM
     Indication: PYREXIA
     Route: 065
     Dates: start: 20130223, end: 20130223
  5. ONDANSETRON [Concomitant]
     Active Substance: ONDANSETRON
     Indication: NAUSEA
     Route: 065
     Dates: start: 20130224, end: 20130227
  6. PERENTERYL [Concomitant]
     Indication: DIARRHOEA
     Route: 065
     Dates: start: 20130226, end: 20130303
  7. TRASTUZUMAB [Suspect]
     Active Substance: TRASTUZUMAB
     Dosage: LAST DOSE PRIOR TO SAE ON 08/FEB/2013 AT A DOSE OF 750 MG
     Route: 042
  8. ACETAMINOPHEN. [Concomitant]
     Active Substance: ACETAMINOPHEN
     Route: 065
     Dates: start: 20130224, end: 20130228
  9. PARGEVERINE [Concomitant]
     Indication: ABDOMINAL PAIN
     Route: 028
     Dates: start: 20130225, end: 20130226
  10. METAMIZOLE [Concomitant]
     Active Substance: METAMIZOLE
     Route: 065
     Dates: start: 20130225, end: 20130226
  11. HIDRASEC [Concomitant]
     Indication: DIARRHOEA
     Route: 065
     Dates: start: 20130227, end: 20130228
  12. CAPECITABINE. [Suspect]
     Active Substance: CAPECITABINE
     Indication: GASTRIC CANCER
     Dosage: LAST DOSE PRIOR TO SAE ON 08/FEB/2013 AT THE DOSE OF 3000 MG
     Route: 048
     Dates: start: 20121115
  13. CISPLATIN. [Suspect]
     Active Substance: CISPLATIN
     Indication: GASTRIC CANCER
     Dosage: LAST DOSE PRIOR TO SAE ON 08/FEB/2013 AT A DOSE OF 99 MG
     Route: 042
     Dates: start: 20121115
  14. DOMPERIDONE [Concomitant]
     Active Substance: DOMPERIDONE
     Indication: CONSTIPATION
     Route: 065
     Dates: start: 20121207, end: 20130910
  15. POTASSIUM CHLORIDE. [Concomitant]
     Active Substance: POTASSIUM CHLORIDE
     Indication: DIARRHOEA
     Route: 065
     Dates: start: 20130304, end: 20130306
  16. OMEPRAZOLE. [Concomitant]
     Active Substance: OMEPRAZOLE
     Indication: GASTRITIS
     Route: 065
     Dates: start: 20130202, end: 20130910
  17. HIDRASEC [Concomitant]
     Route: 065
     Dates: start: 20130303, end: 20130303
  18. ACETAMINOPHEN. [Concomitant]
     Active Substance: ACETAMINOPHEN
     Indication: PYREXIA
     Route: 065
     Dates: start: 20130225, end: 20130228
  19. LACTULOSE. [Concomitant]
     Active Substance: LACTULOSE
     Indication: CONSTIPATION
     Route: 065
     Dates: start: 20121207, end: 20130910
  20. RACECADOTRIL [Concomitant]
     Active Substance: RACECADOTRIL
     Indication: DIARRHOEA
     Route: 065
     Dates: start: 20130302, end: 20130302
  21. CHLORPHENIRAMINE [Concomitant]
     Active Substance: CHLORPHENIRAMINE
     Route: 065
     Dates: start: 20121115, end: 20130910
  22. ONDANSETRON [Concomitant]
     Active Substance: ONDANSETRON
     Route: 065
     Dates: start: 20121115, end: 20130321
  23. RANITIDINE [Concomitant]
     Active Substance: RANITIDINE\RANITIDINE HYDROCHLORIDE
     Route: 065
     Dates: start: 20121115, end: 20130910
  24. MAGNESIUM SULFATE. [Concomitant]
     Active Substance: MAGNESIUM SULFATE
     Indication: DIARRHOEA
     Route: 065
     Dates: start: 20130224, end: 20130301
  25. ACETAMINOPHEN. [Concomitant]
     Active Substance: ACETAMINOPHEN
     Indication: PYREXIA
     Route: 065
     Dates: start: 20130224, end: 20130224
  26. HIDRASEC [Concomitant]
     Route: 065
     Dates: start: 20130304, end: 20130304
  27. BETAMETHASONE [Concomitant]
     Active Substance: BETAMETHASONE
     Route: 065
     Dates: start: 20121115, end: 20130910
  28. NIFEDIPINE. [Concomitant]
     Active Substance: NIFEDIPINE
     Indication: HYPERTENSION
     Route: 065
     Dates: start: 1998, end: 20130910
  29. FOLIC ACID. [Concomitant]
     Active Substance: FOLIC ACID
     Indication: ANAEMIA
     Route: 065
     Dates: start: 20130118, end: 20130612
  30. CALCIUM GLUCONATE. [Concomitant]
     Active Substance: CALCIUM GLUCONATE
     Indication: HYPOCALCAEMIA
     Route: 065
     Dates: start: 20130225, end: 20130304
  31. PERENTERYL [Concomitant]
     Route: 065
     Dates: start: 20130304, end: 20130305
  32. SODIUM CHLORIDE. [Concomitant]
     Active Substance: SODIUM CHLORIDE
     Indication: DIARRHOEA
     Route: 065
     Dates: start: 20130223, end: 20130223
  33. OMEPRAZOLE. [Concomitant]
     Active Substance: OMEPRAZOLE
     Route: 065
     Dates: start: 20130224, end: 20130228
  34. PREGABALIN. [Concomitant]
     Active Substance: PREGABALIN
     Indication: SKIN REACTION
     Route: 065
     Dates: start: 20130208, end: 20130612
  35. HIDRASEC [Concomitant]
     Route: 065
     Dates: start: 20130306, end: 20130306

REACTIONS (1)
  - Neutropenic sepsis [Recovered/Resolved]

NARRATIVE: CASE EVENT DATE: 20130223
